FAERS Safety Report 23328639 (Version 10)
Quarter: 2024Q2

REPORT INFORMATION
  Report Type: Spontaneous
  Country: CA (occurrence: CA)
  Receive Date: 20231221
  Receipt Date: 20240504
  Transmission Date: 20240716
  Serious: Yes (Other)
  Sender: FDA-Public Use
  Company Number: CA-CELLTRION INC.-2023CA024562

PATIENT

DRUGS (11)
  1. INFLECTRA [Suspect]
     Active Substance: INFLIXIMAB-DYYB
     Indication: Colitis ulcerative
     Dosage: 5 MG/KG, WEEKS 0,2,6 THEN EVERY 8 WEEKS ROUNDED UP TO THE NEAREST HUNDRED
     Route: 042
     Dates: start: 20231211
  2. INFLECTRA [Suspect]
     Active Substance: INFLIXIMAB-DYYB
     Dosage: 400 MG, WEEK 2 OF INDUCTION (5 MG/KG, WEEKS 0,2,6 THEN Q 8 WEEKS-ROUNDED UP TO THE NEAREST HUNDRED)
     Route: 042
     Dates: start: 20231227
  3. INFLECTRA [Suspect]
     Active Substance: INFLIXIMAB-DYYB
     Dosage: 400 MG, WEEK 6 DOSE (5 MG/KG, WEEKS 0,2,6 THEN Q 8 WEEKS-ROUNDED UP TO THE NEAREST HUNDRED)
     Route: 042
     Dates: start: 20240124
  4. INFLECTRA [Suspect]
     Active Substance: INFLIXIMAB-DYYB
     Dosage: 800 MG (10 MG/KG), EVERY 4 WEEKS
     Route: 042
     Dates: start: 20240220
  5. INFLECTRA [Suspect]
     Active Substance: INFLIXIMAB-DYYB
     Dosage: 800 MG (10 MG/KG), EVERY 4 WEEKS ROUNDED UP TO THE NEAREST HUNDRED
     Route: 042
     Dates: start: 20240320
  6. INFLECTRA [Suspect]
     Active Substance: INFLIXIMAB-DYYB
     Dosage: 800 MG (10 MG/KG), EVERY 4 WEEKS ROUNDED UP TO THE NEAREST HUNDRED
     Route: 042
     Dates: start: 20240417
  7. FOLIC ACID [Concomitant]
     Active Substance: FOLIC ACID
     Dosage: 5 MG
  8. BUDESONIDE [Concomitant]
     Active Substance: BUDESONIDE
     Indication: Colitis ulcerative
     Dosage: UNK
     Dates: start: 202402
  9. DEXILANT [Concomitant]
     Active Substance: DEXLANSOPRAZOLE
     Dosage: 60 MG
  10. FER [ASCORBIC ACID;FERROUS CHLORIDE] [Concomitant]
     Dosage: 300 MG
  11. METHOTREXATE [Concomitant]
     Active Substance: METHOTREXATE
     Dosage: 10 MG
     Dates: start: 202312

REACTIONS (14)
  - Drug ineffective [Not Recovered/Not Resolved]
  - Condition aggravated [Recovering/Resolving]
  - Haematochezia [Not Recovered/Not Resolved]
  - Musculoskeletal chest pain [Recovering/Resolving]
  - Fatigue [Not Recovered/Not Resolved]
  - Mucous stools [Recovering/Resolving]
  - Frequent bowel movements [Recovering/Resolving]
  - Micturition urgency [Recovering/Resolving]
  - Mobility decreased [Not Recovered/Not Resolved]
  - Flatulence [Unknown]
  - Fatigue [Recovering/Resolving]
  - Insomnia [Recovering/Resolving]
  - Alopecia [Not Recovered/Not Resolved]
  - Muscle spasms [Not Recovered/Not Resolved]

NARRATIVE: CASE EVENT DATE: 20230101
